FAERS Safety Report 4729185-4 (Version None)
Quarter: 2005Q3

REPORT INFORMATION
  Report Type: 
  Country: None (occurrence: None)
  Receive Date: 20050729
  Receipt Date: 20040624
  Transmission Date: 20060218
  Serious: No
  Sender: FDA-Public Use
  Company Number: US-GLAXOSMITHKLINE-A0515870A

PATIENT
  Age: 60 Year
  Sex: Female

DRUGS (4)
  1. IMITREX [Suspect]
     Indication: MIGRAINE
     Route: 048
     Dates: start: 20011115
  2. VIOXX [Concomitant]
     Indication: PAIN
     Route: 048
     Dates: start: 20031210
  3. ATROVENT NASAL [Concomitant]
     Route: 045
     Dates: start: 20040309
  4. QUININE SULFATE [Concomitant]
     Route: 048
     Dates: start: 20040309

REACTIONS (1)
  - DRUG INEFFECTIVE [None]
